FAERS Safety Report 6278616-X (Version None)
Quarter: 2009Q3

REPORT INFORMATION
  Report Type: 
  Country: None (occurrence: None)
  Receive Date: 20090722
  Receipt Date: 20090402
  Transmission Date: 20100115
  Serious: No
  Sender: FDA-Public Use
  Company Number: US-BAUSCH-2009BL001475

PATIENT
  Age: 33 Year
  Sex: Male

DRUGS (3)
  1. OPCON-A [Suspect]
     Indication: EYE PRURITUS
     Route: 047
     Dates: start: 20090401, end: 20090401
  2. OPCON-A [Suspect]
     Indication: HYPERSENSITIVITY
     Route: 047
     Dates: start: 20090401, end: 20090401
  3. ASPIRIN [Concomitant]

REACTIONS (1)
  - DRUG INEFFECTIVE [None]
